FAERS Safety Report 8946885 (Version 1)
Quarter: 2012Q4

REPORT INFORMATION
  Report Type: 
  Country: RO (occurrence: RO)
  Receive Date: 20121205
  Receipt Date: 20121205
  Transmission Date: 20130627
  Serious: Yes (Hospitalization)
  Sender: FDA-Public Use
  Company Number: RO-GLAXOSMITHKLINE-B0846454A

PATIENT
  Age: 75 Year

DRUGS (8)
  1. PROPAFENONE [Suspect]
     Indication: PRODUCT USED FOR UNKNOWN INDICATION
     Dosage: 150MG Twice per day
     Route: 065
  2. DILTIAZEM [Suspect]
     Indication: PRODUCT USED FOR UNKNOWN INDICATION
     Dosage: 60MG Twice per day
     Route: 065
  3. METOPROLOL [Suspect]
     Dosage: 50MG Twice per day
     Route: 065
  4. AMIODARONE [Suspect]
     Route: 065
  5. ASPIRIN [Concomitant]
     Indication: PRODUCT USED FOR UNKNOWN INDICATION
     Dosage: 75MG Per day
     Route: 065
  6. ISOSORBIDE DINITRATE [Concomitant]
     Indication: PRODUCT USED FOR UNKNOWN INDICATION
     Dosage: 20MG Twice per day
     Route: 065
  7. ASPIRIN [Concomitant]
     Indication: PRODUCT USED FOR UNKNOWN INDICATION
     Route: 065
  8. BROMAZEPAM [Concomitant]
     Route: 065

REACTIONS (10)
  - Atrioventricular block first degree [Unknown]
  - Sinus arrest [Unknown]
  - Ventricular tachycardia [Unknown]
  - Tremor [Unknown]
  - Dizziness [Unknown]
  - Nausea [Unknown]
  - Eye disorder [Unknown]
  - Dysgeusia [Unknown]
  - Palpitations [Unknown]
  - Dyspnoea [Unknown]
